FAERS Safety Report 6041025-2 (Version None)
Quarter: 2009Q1

REPORT INFORMATION
  Report Type: 
  Country: None (occurrence: None)
  Receive Date: 20090116
  Receipt Date: 20080812
  Transmission Date: 20090719
  Serious: No
  Sender: FDA-Public Use
  Company Number: US-BRISTOL-MYERS SQUIBB COMPANY-14280879

PATIENT

DRUGS (3)
  1. ABILIFY [Suspect]
     Indication: SCHIZOAFFECTIVE DISORDER
     Dosage: THERAPY DATE: 1YR
     Route: 048
  2. DEPAKOTE [Concomitant]
  3. PROZAC [Concomitant]

REACTIONS (3)
  - PARAESTHESIA [None]
  - TREMOR [None]
  - WEIGHT FLUCTUATION [None]
